FAERS Safety Report 9156183 (Version 1)
Quarter: 2013Q1

REPORT INFORMATION
  Report Type: Spontaneous
  Country: US (occurrence: US)
  Receive Date: 20130123
  Receipt Date: 20130123
  Transmission Date: 20140127
  Serious: No
  Sender: FDA-Public Use
  Company Number: US-BRACCO-008499

PATIENT
  Age: 59 Year
  Sex: Male
  Weight: 72 kg

DRUGS (2)
  1. MULTIHANCE [Suspect]
     Indication: NUCLEAR MAGNETIC RESONANCE IMAGING
     Route: 042
     Dates: start: 20120824, end: 20120824
  2. MULTIHANCE [Suspect]
     Indication: SPINAL CORD INFECTION
     Route: 042
     Dates: start: 20120824, end: 20120824

REACTIONS (1)
  - Aspiration [Unknown]
